FAERS Safety Report 4580288-7 (Version None)
Quarter: 2005Q1

REPORT INFORMATION
  Report Type: 
  Country: None (occurrence: None)
  Receive Date: 20050214
  Receipt Date: 20050126
  Transmission Date: 20050727
  Serious: Yes (Hospitalization)
  Sender: FDA-Public Use
  Company Number: JP-BRISTOL-MYERS SQUIBB COMPANY-12860698

PATIENT
  Age: 28 Year
  Sex: Female

DRUGS (1)
  1. IFOMIDE [Suspect]
     Indication: SARCOMA

REACTIONS (1)
  - ENCEPHALOPATHY [None]
